FAERS Safety Report 5318970-6 (Version None)
Quarter: 2007Q2

REPORT INFORMATION
  Report Type: 
  Country: None (occurrence: None)
  Receive Date: 20070508
  Receipt Date: 20070507
  Transmission Date: 20071010
  Serious: Yes (Hospitalization)
  Sender: FDA-Public Use
  Company Number: FR-BRISTOL-MYERS SQUIBB COMPANY-13693627

PATIENT
  Age: 30 Year
  Sex: Male

DRUGS (7)
  1. BLEOMYCINE ROGER BELLON [Suspect]
     Indication: TESTIS CANCER
     Route: 042
     Dates: start: 20070206, end: 20070206
  2. VEPESID [Suspect]
     Indication: TESTIS CANCER
     Route: 042
     Dates: start: 20070129, end: 20070202
  3. CISPLATIN [Suspect]
     Indication: TESTIS CANCER
     Route: 042
     Dates: start: 20070129, end: 20070202
  4. EPOETIN BETA [Concomitant]
  5. ZOFRAN [Concomitant]
  6. SOLU-MEDROL [Concomitant]
  7. POLARAMINE [Concomitant]

REACTIONS (3)
  - CHEST PAIN [None]
  - ELECTROCARDIOGRAM ABNORMAL [None]
  - VOMITING [None]
